FAERS Safety Report 16880827 (Version 1)
Quarter: 2019Q4

REPORT INFORMATION
  Report Type: Spontaneous
  Country: DK (occurrence: DK)
  Receive Date: 20191003
  Receipt Date: 20191003
  Transmission Date: 20200122
  Serious: Yes (Hospitalization)
  Sender: FDA-Public Use
  Company Number: DK-TEVA-2019-DK-1115823

PATIENT
  Age: 73 Year
  Sex: Female

DRUGS (2)
  1. MIRTAZAPIN ^ORION^ [Suspect]
     Active Substance: MIRTAZAPINE
     Indication: DEPRESSION
     Dosage: STRENGTH: 15 MG.
     Route: 048
     Dates: start: 20190523, end: 20190827
  2. ENALAPRIL HYDROCHLORTHIAZID ^TEVA^ [Suspect]
     Active Substance: ENALAPRIL\HYDROCHLOROTHIAZIDE
     Indication: HYPERTENSION
     Dosage: STRENGTH: 20 + 12.5 MG.
     Route: 048
     Dates: start: 201205

REACTIONS (2)
  - Hyponatraemia [Recovering/Resolving]
  - General physical health deterioration [Unknown]

NARRATIVE: CASE EVENT DATE: 201908
